FAERS Safety Report 4630532-2 (Version None)
Quarter: 2005Q2

REPORT INFORMATION
  Report Type: 
  Country: None (occurrence: None)
  Receive Date: 20050408
  Receipt Date: 20050331
  Transmission Date: 20051028
  Serious: Yes (Other)
  Sender: FDA-Public Use
  Company Number: US-GLAXOSMITHKLINE-A0552167A

PATIENT
  Age: 61 Year
  Sex: Female

DRUGS (5)
  1. REQUIP [Suspect]
     Indication: MULTIPLE SCLEROSIS
     Dosage: 2MG PER DAY
     Route: 048
     Dates: start: 20050329, end: 20050329
  2. COPAXONE [Concomitant]
  3. CELLCEPT [Concomitant]
  4. ATENOLOL [Concomitant]
  5. BACLOFEN [Concomitant]

REACTIONS (6)
  - FATIGUE [None]
  - FEELING COLD [None]
  - HYPOTENSION [None]
  - NAUSEA [None]
  - SLEEP ATTACKS [None]
  - TREMOR [None]
